FAERS Safety Report 16039267 (Version 2)
Quarter: 2019Q1

REPORT INFORMATION
  Report Type: Spontaneous
  Country: JP (occurrence: JP)
  Receive Date: 20190306
  Receipt Date: 20190313
  Transmission Date: 20190418
  Serious: Yes (Other)
  Sender: FDA-Public Use
  Company Number: JP-BIOVERATIV-2019SA060017AA

PATIENT
  Age: 25 Year
  Sex: Male
  Weight: 60 kg

DRUGS (1)
  1. ALPROLIX [Suspect]
     Active Substance: EFTRENONACOG ALFA
     Indication: FACTOR IX DEFICIENCY
     Dosage: 3000 IU, QW
     Route: 042
     Dates: start: 201512

REACTIONS (1)
  - Haemarthrosis [Recovered/Resolved]
